FAERS Safety Report 8590058-0 (Version None)
Quarter: 2012Q3

REPORT INFORMATION
  Report Type: 
  Country: None (occurrence: None)
  Receive Date: 20120813
  Receipt Date: 20120808
  Transmission Date: 20120928
  Serious: Yes (Life-Threatening, Hospitalization)
  Sender: FDA-Public Use
  Company Number: IT-ASTRAZENECA-2012SE54601

PATIENT
  Age: 12101 Day
  Sex: Male

DRUGS (3)
  1. ESCITALOPRAM [Suspect]
     Indication: MAJOR DEPRESSION
     Route: 048
     Dates: start: 20110601, end: 20111001
  2. SEROQUEL [Suspect]
     Indication: MAJOR DEPRESSION
     Route: 048
     Dates: start: 20110601, end: 20111001
  3. DEPAKENE [Suspect]
     Indication: MAJOR DEPRESSION
     Route: 048
     Dates: start: 20110601, end: 20111001

REACTIONS (2)
  - HYPERTHERMIA [None]
  - SUICIDE ATTEMPT [None]
